FAERS Safety Report 9013945 (Version 1)
Quarter: 2013Q1

REPORT INFORMATION
  Report Type: Spontaneous
  Country: MX (occurrence: MX)
  Receive Date: 20130115
  Receipt Date: 20130115
  Transmission Date: 20140127
  Serious: Yes (Hospitalization)
  Sender: FDA-Public Use
  Company Number: MX-PFIZER INC-2013014812

PATIENT
  Age: 67 Year
  Sex: Male

DRUGS (5)
  1. TRITACE PREVENT [Suspect]
     Dosage: 10 MG, DAILY
     Route: 048
     Dates: start: 2011, end: 201211
  2. TRITACE PREVENT [Suspect]
     Dosage: 10 MG, 2X/DAY
     Dates: start: 201211
  3. METOPROLOL TARTRATE [Suspect]
     Indication: HYPERTENSION
     Dosage: 100 MG, DAILY
     Route: 048
     Dates: start: 2011
  4. ATORVASTATIN [Concomitant]
     Dosage: UNK
  5. ASPIRIN PROTECT [Concomitant]
     Dosage: UNK
     Dates: start: 2011

REACTIONS (4)
  - Angina pectoris [Recovered/Resolved]
  - Hypertension [Recovered/Resolved]
  - Arrhythmia [Recovered/Resolved]
  - Incorrect dose administered [Unknown]
